FAERS Safety Report 10769820 (Version 2)
Quarter: 2015Q1

REPORT INFORMATION
  Report Type: Report from Study
  Country: EG (occurrence: EG)
  Receive Date: 20150206
  Receipt Date: 20150213
  Transmission Date: 20150721
  Serious: Yes (Death)
  Sender: FDA-Public Use
  Company Number: EG-SA-2015SA013300

PATIENT
  Age: 17 Year
  Sex: Male

DRUGS (1)
  1. LANTUS [Suspect]
     Active Substance: INSULIN GLARGINE
     Indication: TYPE 1 DIABETES MELLITUS
     Route: 058
     Dates: start: 20131007

REACTIONS (2)
  - Viral infection [Fatal]
  - Epilepsy [Fatal]

NARRATIVE: CASE EVENT DATE: 201410
